FAERS Safety Report 16928504 (Version 2)
Quarter: 2020Q1

REPORT INFORMATION
  Report Type: Spontaneous
  Country: DE (occurrence: DE)
  Receive Date: 20191017
  Receipt Date: 20200108
  Transmission Date: 20200409
  Serious: Yes (Hospitalization)
  Sender: FDA-Public Use
  Company Number: DE-DRREDDYS-GER/GER/19/0115170

PATIENT
  Age: 16 Year
  Sex: Female

DRUGS (4)
  1. FLUOXETINE [Suspect]
     Active Substance: FLUOXETINE HYDROCHLORIDE
     Indication: DEPRESSION
     Route: 048
     Dates: start: 20190115
  2. FLUOXETINE [Suspect]
     Active Substance: FLUOXETINE HYDROCHLORIDE
     Indication: SUICIDAL IDEATION
     Route: 048
     Dates: start: 20190115
  3. OLANZAPINE. [Suspect]
     Active Substance: OLANZAPINE
     Indication: SUICIDAL IDEATION
     Route: 048
     Dates: start: 20190115
  4. LEVOMEPROMAZINE [Suspect]
     Active Substance: LEVOMEPROMAZINE
     Indication: SUICIDAL IDEATION
     Route: 048
     Dates: start: 20190115

REACTIONS (2)
  - Hypotension [Unknown]
  - Dysarthria [Unknown]

NARRATIVE: CASE EVENT DATE: 20190115
